FAERS Safety Report 21659910 (Version 3)
Quarter: 2022Q4

REPORT INFORMATION
  Report Type: Report from Study
  Country: CN (occurrence: CN)
  Receive Date: 20221130
  Receipt Date: 20221205
  Transmission Date: 20230112
  Serious: Yes (Life-Threatening, Hospitalization)
  Sender: FDA-Public Use
  Company Number: CN-BEIGENE-BGN-2022-011208

PATIENT
  Age: 37 Year
  Sex: Female

DRUGS (10)
  1. PLACEBO [Suspect]
     Active Substance: UNSPECIFIED INGREDIENT
     Indication: Non-small cell lung cancer metastatic
     Dosage: 900 MG, Q3W
     Route: 042
     Dates: start: 20221018
  2. PLACEBO [Suspect]
     Active Substance: UNSPECIFIED INGREDIENT
     Dosage: 900 MG, Q3W
     Route: 042
     Dates: start: 20221121
  3. TISLELIZUMAB [Suspect]
     Active Substance: TISLELIZUMAB
     Indication: Non-small cell lung cancer metastatic
     Dosage: 200 MG, Q3W
     Route: 042
     Dates: start: 20221018
  4. TISLELIZUMAB [Suspect]
     Active Substance: TISLELIZUMAB
     Dosage: 200 MG, Q3W
     Route: 042
     Dates: start: 20221121
  5. PEMETREXED [Suspect]
     Active Substance: PEMETREXED
     Indication: Non-small cell lung cancer metastatic
     Dosage: 776 MG
     Route: 042
     Dates: end: 20221121
  6. CARBOPLATIN [Suspect]
     Active Substance: CARBOPLATIN
     Indication: Non-small cell lung cancer metastatic
     Dosage: 750 MG
     Route: 042
     Dates: end: 20221122
  7. TRAMADOL [Concomitant]
     Active Substance: TRAMADOL
     Indication: Arthralgia
     Dosage: UNK
     Route: 065
  8. FOLIC ACID [Concomitant]
     Active Substance: FOLIC ACID
     Indication: Prophylaxis
     Dosage: UNK
     Route: 065
     Dates: start: 20221118
  9. DIPHENHYDRAMINE [Concomitant]
     Active Substance: DIPHENHYDRAMINE
     Indication: Allergy prophylaxis
     Dosage: UNK
     Route: 065
  10. METHOXAMINE [Concomitant]
     Active Substance: METHOXAMINE
     Indication: Cough
     Dosage: UNK
     Route: 065
     Dates: start: 20221122

REACTIONS (1)
  - Shock [Not Recovered/Not Resolved]

NARRATIVE: CASE EVENT DATE: 20221123
